FAERS Safety Report 7089908-9 (Version None)
Quarter: 2010Q4

REPORT INFORMATION
  Report Type: 
  Country: None (occurrence: None)
  Receive Date: 20101108
  Receipt Date: 20101027
  Transmission Date: 20110411
  Serious: Yes (Hospitalization)
  Sender: FDA-Public Use
  Company Number: DE-AMGEN-QUU443995

PATIENT

DRUGS (8)
  1. ENBREL [Suspect]
     Indication: RHEUMATOID ARTHRITIS
     Dosage: 50 MG, QWK
     Route: 058
     Dates: start: 20070911
  2. ENBREL [Suspect]
     Dosage: 50 MG, QWK
     Route: 058
     Dates: start: 20100101
  3. PREDNISOLONE [Concomitant]
     Dosage: 5 MG, UNK
  4. CALCIUM [Concomitant]
     Dosage: UNK UNK, UNK
  5. CALCIUM [Concomitant]
     Dosage: UNKNOWN
  6. RANITIDINE [Concomitant]
     Dosage: UNK UNK, UNK
  7. RANITIDINE [Concomitant]
     Dosage: UNKNOWN
  8. DECORTIN-H [Concomitant]
     Dosage: 5MG, FREQUENCY UNKNOWN

REACTIONS (1)
  - FOOT OPERATION [None]
